FAERS Safety Report 12238993 (Version 2)
Quarter: 2016Q2

REPORT INFORMATION
  Report Type: Report from Study
  Country: US (occurrence: US)
  Receive Date: 20160405
  Receipt Date: 20160407
  Transmission Date: 20160815
  Serious: Yes (Other)
  Sender: FDA-Public Use
  Company Number: US-MALLINCKRODT-T201601108

PATIENT
  Sex: Female

DRUGS (2)
  1. REPOSITORY CORTICOTROPIN INJECTION [Suspect]
     Active Substance: CORTICOTROPIN
     Indication: GLOMERULONEPHRITIS MEMBRANOUS
     Dosage: 80 UNITS TWICE A WEEK (MON AND THURS)
     Route: 065
     Dates: start: 20151112, end: 20160314
  2. ENBREL [Concomitant]
     Active Substance: ETANERCEPT

REACTIONS (2)
  - Drug ineffective [Not Recovered/Not Resolved]
  - Renal impairment [Unknown]
